FAERS Safety Report 23140481 (Version 1)
Quarter: 2023Q4

REPORT INFORMATION
  Report Type: Spontaneous
  Country: GB (occurrence: GB)
  Receive Date: 20231102
  Receipt Date: 20231102
  Transmission Date: 20240110
  Serious: Yes (Other)
  Sender: FDA-Public Use
  Company Number: GB-UCBSA-2023049459

PATIENT
  Age: 64 Year
  Sex: Female
  Weight: 44.5 kg

DRUGS (9)
  1. EVENITY [Suspect]
     Active Substance: ROMOSOZUMAB-AQQG
     Indication: Product used for unknown indication
     Dosage: 150 MILLIGRAM
     Route: 065
     Dates: start: 202302
  2. WARFARIN [Concomitant]
     Active Substance: WARFARIN
     Indication: Antiphospholipid syndrome
     Dosage: VARIES BY INR TARGET 3-4.5, NOCTE
     Route: 048
     Dates: start: 1996
  3. TOPIRAMATE [Concomitant]
     Active Substance: TOPIRAMATE
     Indication: Epilepsy
     Dosage: 25 MG MORN 50 MG EVE
     Route: 048
     Dates: start: 2006
  4. EPILIM [Concomitant]
     Active Substance: VALPROATE SODIUM
     Indication: Epilepsy
     Dosage: 500 MILLIGRAM, 2X/DAY (BID)
     Route: 048
     Dates: start: 1999
  5. URSODIOL [Concomitant]
     Active Substance: URSODIOL
     Indication: Primary biliary cholangitis
     Dosage: 250 MILLIGRAM, 2X/DAY (BID)
     Route: 048
     Dates: start: 2005
  6. HYDROXYCHLOROQUINE [Concomitant]
     Active Substance: HYDROXYCHLOROQUINE
     Indication: Systemic lupus erythematosus
     Dosage: 200 MILLIGRAM, MONE
     Route: 048
     Dates: start: 2004
  7. CALCIUM CARBONATE\CHOLECALCIFEROL [Concomitant]
     Active Substance: CALCIUM CARBONATE\CHOLECALCIFEROL
     Indication: Osteoporosis
     Dosage: 1 TAB, NOCTE
     Route: 048
     Dates: start: 2011
  8. FENTANYL [Concomitant]
     Active Substance: FENTANYL\FENTANYL CITRATE
     Indication: Spinal pain
     Dosage: 37 MICROGRAM/HR, CHANGE 48RH
     Route: 062
     Dates: start: 2015
  9. OXYCODONE [Concomitant]
     Active Substance: OXYCODONE
     Indication: Fracture pain
     Dosage: 10 MILLIGRAM, PRN UP TO 3 HOURLY. CURRENTLY 3-4 DOSES PER DAY (HOSPITAL ADVISED DOSE)
     Route: 048
     Dates: start: 202208

REACTIONS (5)
  - Muscle rupture [Not Recovered/Not Resolved]
  - Fatigue [Not Recovered/Not Resolved]
  - Abdominal pain upper [Not Recovered/Not Resolved]
  - Muscle strain [Not Recovered/Not Resolved]
  - Myalgia [Not Recovered/Not Resolved]

NARRATIVE: CASE EVENT DATE: 20230101
